FAERS Safety Report 4985694-4 (Version None)
Quarter: 2006Q2

REPORT INFORMATION
  Report Type: 
  Country: None (occurrence: None)
  Receive Date: 20060421
  Receipt Date: 20060407
  Transmission Date: 20061013
  Serious: Yes (Other)
  Sender: FDA-Public Use
  Company Number: 2006BH007787

PATIENT
  Sex: Female

DRUGS (4)
  1. VINORELBINE TARTRATE [Suspect]
     Indication: BREAST CANCER
     Dosage: 25 MG/M2
  2. GEMCITABINE [Suspect]
     Indication: BREAST CANCER
     Dosage: 1000 MG/M2
  3. DOCETAXEL (DOCETAXEL) [Suspect]
     Indication: BREAST CANCER
     Dosage: 75 MG/M2
  4. EPIRUBICIN [Suspect]
     Indication: BREAST CANCER
     Dosage: 100 MG/M2

REACTIONS (1)
  - NEUTROPENIA [None]
